FAERS Safety Report 14110103 (Version 3)
Quarter: 2018Q2

REPORT INFORMATION
  Report Type: Report from Study
  Country: TR (occurrence: TR)
  Receive Date: 20171020
  Receipt Date: 20180406
  Transmission Date: 20180711
  Serious: Yes (Death)
  Sender: FDA-Public Use
  Company Number: TR-B.I. PHARMACEUTICALS,INC./RIDGEFIELD-2017-BI-056509

PATIENT
  Weight: 55 kg

DRUGS (2)
  1. PRAXBIND [Suspect]
     Active Substance: IDARUCIZUMAB
     Indication: HAEMORRHAGE
  2. PRAXBIND [Suspect]
     Active Substance: IDARUCIZUMAB
     Indication: LOWER GASTROINTESTINAL HAEMORRHAGE
     Route: 065
     Dates: end: 20171017

REACTIONS (1)
  - Haemorrhage [Fatal]
